FAERS Safety Report 24740148 (Version 2)
Quarter: 2025Q1

REPORT INFORMATION
  Report Type: Spontaneous
  Country: US (occurrence: US)
  Receive Date: 20241216
  Receipt Date: 20250102
  Transmission Date: 20250408
  Serious: No
  Sender: MERCK
  Company Number: US-009507513-2412USA003488

PATIENT
  Sex: Female
  Weight: 48.5 kg

DRUGS (15)
  1. WINREVAIR [Suspect]
     Active Substance: SOTATERCEPT-CSRK
     Indication: Pulmonary arterial hypertension
     Dosage: 15 MILLIGRAM, Q3W
     Route: 058
     Dates: start: 20240907
  2. WINREVAIR [Suspect]
     Active Substance: SOTATERCEPT-CSRK
     Dosage: 0.7 MILLIGRAM/KILOGRAM, Q3W
     Route: 058
     Dates: start: 20241018
  3. REMODULIN [Suspect]
     Active Substance: TREPROSTINIL
     Indication: Pulmonary arterial hypertension
     Route: 058
     Dates: start: 20230313, end: 20240907
  4. UPTRAVI [Suspect]
     Active Substance: SELEXIPAG
     Indication: Pulmonary arterial hypertension
     Route: 058
     Dates: start: 202409
  5. MIRALAX [Concomitant]
     Active Substance: POLYETHYLENE GLYCOL 3350
  6. TADALAFIL [Concomitant]
     Active Substance: TADALAFIL
  7. VITAMINS [Concomitant]
     Active Substance: VITAMINS
  8. AMBRISENTAN [Concomitant]
     Active Substance: AMBRISENTAN
  9. OXYGEN [Concomitant]
     Active Substance: OXYGEN
  10. VITAMIN D3 [Concomitant]
     Active Substance: CHOLECALCIFEROL
  11. FERROUS SULFATE [Concomitant]
     Active Substance: FERROUS SULFATE
  12. AYGESTIN [Concomitant]
     Active Substance: NORETHINDRONE ACETATE
  13. DEPO-PROVERA [Concomitant]
     Active Substance: MEDROXYPROGESTERONE ACETATE
  14. ENOXAPARIN [Concomitant]
     Active Substance: ENOXAPARIN
  15. POLYETHYLENE GLYCOLS [Concomitant]
     Active Substance: POLYETHYLENE GLYCOLS

REACTIONS (2)
  - Haemoglobin increased [Recovering/Resolving]
  - Product administered to patient of inappropriate age [Unknown]

NARRATIVE: CASE EVENT DATE: 20240101
